FAERS Safety Report 24277771 (Version 1)
Quarter: 2024Q3

REPORT INFORMATION
  Report Type: Spontaneous
  Country: US (occurrence: US)
  Receive Date: 20240903
  Receipt Date: 20240903
  Transmission Date: 20241016
  Serious: No
  Sender: BAYER
  Company Number: US-BAYER-2024A120601

PATIENT
  Age: 9 Year
  Sex: Male

DRUGS (3)
  1. CLARITIN [Suspect]
     Active Substance: LORATADINE
     Indication: Drug hypersensitivity
     Dosage: UNK
     Route: 048
     Dates: start: 20240810, end: 20240812
  2. CLARITIN [Suspect]
     Active Substance: LORATADINE
     Indication: Pruritus
  3. CLARITIN [Suspect]
     Active Substance: LORATADINE
     Indication: Swelling

REACTIONS (1)
  - Drug effective for unapproved indication [Recovered/Resolved]

NARRATIVE: CASE EVENT DATE: 20240810
